FAERS Safety Report 9060048 (Version 1)
Quarter: 2013Q1

REPORT INFORMATION
  Report Type: Spontaneous
  Country: US (occurrence: None)
  Receive Date: 20130207
  Receipt Date: 20130207
  Transmission Date: 20140127
  Serious: Yes (Other)
  Sender: FDA-Public Use
  Company Number: None

PATIENT
  Sex: Female

DRUGS (1)
  1. EXEMESTANE [Suspect]
     Indication: NEOPLASM MALIGNANT
     Dosage: 25 MG DAILY ORAL
     Route: 048
     Dates: start: 201211, end: 20130123

REACTIONS (1)
  - Rash generalised [None]
